APPROVED DRUG PRODUCT: TERCONAZOLE
Active Ingredient: TERCONAZOLE
Strength: 0.8%
Dosage Form/Route: CREAM;VAGINAL
Application: A075953 | Product #001 | TE Code: BX
Applicant: SUN PHARMA CANADA INC
Approved: Apr 6, 2004 | RLD: No | RS: Yes | Type: RX